FAERS Safety Report 26055959 (Version 1)
Quarter: 2025Q4

REPORT INFORMATION
  Report Type: Report from Study
  Country: US (occurrence: US)
  Receive Date: 20251118
  Receipt Date: 20251118
  Transmission Date: 20260118
  Serious: Yes (Other)
  Sender: ALEXION PHARMACEUTICALS
  Company Number: US-ASTRAZENECA-202511NAM009027US

PATIENT
  Age: 33 Year
  Sex: Female

DRUGS (1)
  1. STRENSIQ [Suspect]
     Active Substance: ASFOTASE ALFA
     Indication: Phosphorus metabolism disorder
     Dosage: 40 MILLIGRAM, TIW
     Route: 065

REACTIONS (14)
  - Seizure [Unknown]
  - Sepsis [Unknown]
  - Pneumonia [Unknown]
  - Hyperkalaemia [Unknown]
  - Urinary tract infection [Unknown]
  - Pyrexia [Unknown]
  - Blister [Unknown]
  - Cellulitis [Unknown]
  - Tachycardia [Unknown]
  - Dehydration [Unknown]
  - Hyperammonaemia [Unknown]
  - Wound infection [Unknown]
  - Road traffic accident [Unknown]
  - Eye disorder [Unknown]

NARRATIVE: CASE EVENT DATE: 20240913
